FAERS Safety Report 5909283-X (Version None)
Quarter: 2008Q4

REPORT INFORMATION
  Report Type: 
  Country: None (occurrence: None)
  Receive Date: 20081006
  Receipt Date: 20081001
  Transmission Date: 20090506
  Serious: Yes (Other)
  Sender: FDA-Public Use
  Company Number: US-WYE-H06197308

PATIENT

DRUGS (1)
  1. CORDARONE [Suspect]
     Dosage: 200 MG, FREQUENCY UNKNOWN
     Route: 065

REACTIONS (3)
  - ATAXIA [None]
  - BRAIN INJURY [None]
  - NEUROPATHY PERIPHERAL [None]
